FAERS Safety Report 7151862 (Version 10)
Quarter: 2018Q1

REPORT INFORMATION
  Report Type: Spontaneous
  Country: DE (occurrence: DE)
  Receive Date: 20091019
  Receipt Date: 20180226
  Transmission Date: 20180509
  Serious: Yes (Other)
  Sender: FDA-Public Use
  Company Number: DE-JNJFOC-20091002579

PATIENT
  Age: 51 Year
  Sex: Male

DRUGS (15)
  1. REMICADE [Suspect]
     Active Substance: INFLIXIMAB
     Indication: PSORIASIS
     Dosage: WEEKS 0,2,6 AND 14 RESPECTIVELY, SHORT INFUSIONS, THEN 6 INFUSIONS AT 8 WEEK INTERVALS (450 MG)
     Route: 042
     Dates: start: 200510
  2. FUMADERM [Suspect]
     Active Substance: CALCIUM MONOETHYLFUMARATE\DIMETHYL FUMARATE\MAGNESIUM MONOETHYLFUMARATE\ZINC MONOETHYLFUMARATE
     Indication: PSORIASIS
     Route: 065
     Dates: start: 20010101, end: 20050101
  3. NEOTIGASON [Suspect]
     Active Substance: ACITRETIN
     Indication: PSORIASIS
     Dosage: DISCONTINUED BECAUSE OF INEFFECTIVENESS
     Route: 065
  4. CICLOSPORIN [Suspect]
     Active Substance: CYCLOSPORINE
     Indication: PSORIASIS
     Route: 065
  5. CICLOSPORIN [Suspect]
     Active Substance: CYCLOSPORINE
     Indication: MALIGNANT MELANOMA
     Route: 065
  6. ENBREL [Suspect]
     Active Substance: ETANERCEPT
     Indication: PSORIASIS
     Route: 065
     Dates: start: 200706
  7. CICLOSPORIN A [Suspect]
     Active Substance: CYCLOSPORINE
     Indication: PRODUCT USED FOR UNKNOWN INDICATION
     Route: 065
     Dates: start: 200506
  8. HUMIRA [Suspect]
     Active Substance: ADALIMUMAB
     Indication: PSORIASIS
     Dosage: 6 YEARS AGO
     Route: 058
     Dates: start: 2007
  9. METHOTREXATE. [Suspect]
     Active Substance: METHOTREXATE
     Indication: PSORIASIS
     Dosage: STOPPED OWING TO A LACK OF THERAPEUTIC RESPONSE
     Route: 065
  10. CALCIPOTRIOL [Concomitant]
     Active Substance: CALCIPOTRIENE
     Indication: PRODUCT USED FOR UNKNOWN INDICATION
     Route: 061
  11. NEOTIGASON [Suspect]
     Active Substance: ACITRETIN
     Indication: PSORIASIS
     Dosage: DISCONTINUED BECAUSE OF INEFFECTIVENESS
     Route: 065
  12. REMICADE [Suspect]
     Active Substance: INFLIXIMAB
     Indication: PSORIASIS
     Dosage: WEEKS 0,2,6 AND 14 RESPECTIVELY, SHORT INFUSIONS, THEN 6 INFUSIONS AT 8 WEEK INTERVALS (450 MG)
     Route: 042
     Dates: start: 200510
  13. ENBREL [Suspect]
     Active Substance: ETANERCEPT
     Indication: PSORIASIS
     Route: 065
     Dates: start: 200706
  14. HUMIRA [Suspect]
     Active Substance: ADALIMUMAB
     Indication: PSORIASIS
     Dosage: 6 YEARS AGO
     Route: 058
     Dates: start: 2007
  15. METHOTREXATE. [Suspect]
     Active Substance: METHOTREXATE
     Indication: MALIGNANT MELANOMA
     Dosage: STOPPED OWING TO A LACK OF THERAPEUTIC RESPONSE
     Route: 065

REACTIONS (8)
  - Malignant melanoma [Recovered/Resolved]
  - Superficial spreading melanoma stage unspecified [Recovered/Resolved]
  - Hyperkeratosis [Unknown]
  - Blood pressure increased [Unknown]
  - Therapy non-responder [Recovered/Resolved]
  - Psoriasis [Unknown]
  - Keratoacanthoma [Not Recovered/Not Resolved]
  - Malignant melanoma stage I [Recovered/Resolved]

NARRATIVE: CASE EVENT DATE: 200702
